FAERS Safety Report 5167830-2 (Version None)
Quarter: 2006Q4

REPORT INFORMATION
  Report Type: 
  Country: None (occurrence: None)
  Receive Date: 20061130
  Receipt Date: 20061130
  Transmission Date: 20070319
  Serious: Yes (Hospitalization)
  Sender: FDA-Public Use
  Company Number: None

PATIENT
  Age: 75 Year
  Sex: Male

DRUGS (1)
  1. WARFARIN SODIUM [Suspect]
     Indication: ATRIAL FIBRILLATION
     Dosage: 4.5 MG DAILY PO
     Route: 048
     Dates: start: 20060201, end: 20060711

REACTIONS (3)
  - FALL [None]
  - HAEMORRHAGIC STROKE [None]
  - INTERNATIONAL NORMALISED RATIO INCREASED [None]
